FAERS Safety Report 7425947-3 (Version None)
Quarter: 2011Q2

REPORT INFORMATION
  Report Type: 
  Country: None (occurrence: None)
  Receive Date: 20110420
  Receipt Date: 20110412
  Transmission Date: 20111010
  Serious: Yes (Death)
  Sender: FDA-Public Use
  Company Number: CA-ROCHE-770927

PATIENT
  Sex: Female
  Weight: 114.8 kg

DRUGS (7)
  1. BEVACIZUMAB [Suspect]
     Route: 042
     Dates: start: 20110303, end: 20110325
  2. DIHYDROCHLOROTHIAZIDE [Concomitant]
  3. ALENDRONATE SODIUM [Concomitant]
  4. TYLENOL W/ CODEINE NO. 3 [Concomitant]
     Indication: SCIATICA
  5. FLOVENT [Concomitant]
  6. FOLIC ACID [Concomitant]
  7. NORTRIPTYLINE [Concomitant]

REACTIONS (1)
  - NEOPLASM MALIGNANT [None]
